FAERS Safety Report 6633044-X (Version None)
Quarter: 2010Q1

REPORT INFORMATION
  Report Type: 
  Country: None (occurrence: None)
  Receive Date: 20100312
  Receipt Date: 20100301
  Transmission Date: 20100710
  Serious: Yes (Other)
  Sender: FDA-Public Use
  Company Number: PHHY2010CA12362

PATIENT
  Sex: Female

DRUGS (1)
  1. DIOVAN [Suspect]
     Dosage: 160 MG (1 TABLET)
     Route: 048
     Dates: start: 20100111

REACTIONS (2)
  - GASTROINTESTINAL NEOPLASM [None]
  - SURGERY [None]
